FAERS Safety Report 8172887-0 (Version None)
Quarter: 2012Q1

REPORT INFORMATION
  Report Type: 
  Country: None (occurrence: None)
  Receive Date: 20120229
  Receipt Date: 20120229
  Transmission Date: 20120608
  Serious: Yes (Hospitalization, Disabling)
  Sender: FDA-Public Use
  Company Number: None

PATIENT
  Age: 52 Year
  Sex: Male
  Weight: 90.718 kg

DRUGS (1)
  1. TESSALON [Suspect]
     Indication: COUGH
     Dosage: 100.0 MG
     Route: 048
     Dates: start: 20081215, end: 20090115

REACTIONS (2)
  - SUICIDAL BEHAVIOUR [None]
  - PARANOIA [None]
